FAERS Safety Report 7159925-9 (Version None)
Quarter: 2010Q4

REPORT INFORMATION
  Report Type: 
  Country: None (occurrence: None)
  Receive Date: 20101214
  Receipt Date: 20101209
  Transmission Date: 20110411
  Serious: Yes (Hospitalization)
  Sender: FDA-Public Use
  Company Number: CA-ABBOTT-10P-028-0690262-00

PATIENT
  Sex: Male
  Weight: 63.56 kg

DRUGS (2)
  1. HUMIRA [Suspect]
     Indication: CROHN'S DISEASE
     Route: 058
     Dates: start: 20080101, end: 20101124
  2. HUMIRA [Suspect]
     Indication: FISTULA

REACTIONS (3)
  - ABDOMINAL PAIN [None]
  - FISTULA [None]
  - POST PROCEDURAL COMPLICATION [None]
